FAERS Safety Report 12520415 (Version 2)
Quarter: 2016Q3

REPORT INFORMATION
  Report Type: Report from Study
  Country: US (occurrence: US)
  Receive Date: 20160701
  Receipt Date: 20160718
  Transmission Date: 20161109
  Serious: No
  Sender: FDA-Public Use
  Company Number: US-AMGEN-USASP2016083301

PATIENT
  Age: 51 Year
  Sex: Female

DRUGS (1)
  1. ENBREL [Suspect]
     Active Substance: ETANERCEPT
     Indication: PSORIATIC ARTHROPATHY
     Dosage: 50 MG, USE AS DIRECTED BY THE PHYSICIAN
     Route: 065
     Dates: start: 20160309

REACTIONS (7)
  - Diarrhoea [Unknown]
  - Drug dose omission [Unknown]
  - Influenza [Unknown]
  - Psoriasis [Unknown]
  - Vomiting [Unknown]
  - Musculoskeletal pain [Unknown]
  - Herpes zoster [Unknown]

NARRATIVE: CASE EVENT DATE: 2016
